FAERS Safety Report 12489488 (Version 1)
Quarter: 2016Q2

REPORT INFORMATION
  Report Type: Spontaneous
  Country: JP (occurrence: JP)
  Receive Date: 20160622
  Receipt Date: 20160622
  Transmission Date: 20160815
  Serious: Yes (Hospitalization)
  Sender: FDA-Public Use
  Company Number: JP-WARNER CHILCOTT, LLC-1054180

PATIENT
  Sex: Female

DRUGS (1)
  1. ACTONEL [Suspect]
     Active Substance: RISEDRONATE SODIUM
     Indication: OSTEOPOROSIS
     Route: 048
     Dates: start: 20160401

REACTIONS (6)
  - Oedema peripheral [None]
  - Abdominal distension [None]
  - Vulvovaginal swelling [None]
  - Malaise [None]
  - Vulval cellulitis [None]
  - Pyrexia [None]
